FAERS Safety Report 5041110-8 (Version None)
Quarter: 2006Q3

REPORT INFORMATION
  Report Type: 
  Country: None (occurrence: None)
  Receive Date: 20060703
  Receipt Date: 20060602
  Transmission Date: 20061208
  Serious: Yes (Hospitalization)
  Sender: FDA-Public Use
  Company Number: NL-ROCHE-451346

PATIENT
  Age: 70 Year
  Sex: Female

DRUGS (6)
  1. CAPECITABINE [Suspect]
     Dosage: DAYS 1-14 OF A 3 WEEK CYCLE DOSE AND FREQUENCY AS PER PROTCOL REPORTED  =  2000MG
     Route: 048
     Dates: start: 20051201
  2. AVASTIN [Suspect]
     Dosage: ON DAY 1 DOSE AND FREQUENCY AS PER PROTOCOL REPORTED  =  450MG
     Route: 042
     Dates: start: 20051201
  3. OXALIPLATIN [Suspect]
     Dosage: ON DAY 1 DOSE AND FREQUENCY AS PER PROTOCOL NO DOSE OR FREQUENCY REPORTED
     Route: 042
     Dates: start: 20051201
  4. METOCLOPRAMIDE [Concomitant]
  5. SLOW-K [Concomitant]
  6. LOPERAMIDE [Concomitant]

REACTIONS (1)
  - PANCREATITIS [None]
